FAERS Safety Report 10211050 (Version 1)
Quarter: 2014Q2

REPORT INFORMATION
  Report Type: Spontaneous
  Country: US (occurrence: None)
  Receive Date: 20140530
  Receipt Date: 20140530
  Transmission Date: 20141212
  Serious: Yes (Disabling, Other)
  Sender: FDA-Public Use
  Company Number: None

PATIENT
  Age: 47 Year
  Sex: Female
  Weight: 63.96 kg

DRUGS (2)
  1. WELLBUTRIN 75 MG [Suspect]
     Indication: SMOKING CESSATION THERAPY
     Dosage: APPROXIMATELY THIRTY DAYS, 2 PILL, TWICE DAILY, TAKEN BY MOUTH
     Route: 048
  2. WELLBUTRIN 75 MG [Suspect]
     Indication: DEPRESSION
     Dosage: APPROXIMATELY THIRTY DAYS, 2 PILL, TWICE DAILY, TAKEN BY MOUTH
     Route: 048

REACTIONS (2)
  - Weight increased [None]
  - Arthralgia [None]
